FAERS Safety Report 23275605 (Version 1)
Quarter: 2023Q4

REPORT INFORMATION
  Report Type: Spontaneous
  Country: US (occurrence: US)
  Receive Date: 20231208
  Receipt Date: 20231208
  Transmission Date: 20240110
  Serious: Yes (Other)
  Sender: FDA-Public Use
  Company Number: US-AMERICAN REGENT INC-2023002837

PATIENT

DRUGS (1)
  1. GEMCITABINE [Suspect]
     Active Substance: GEMCITABINE
     Indication: Cutaneous T-cell lymphoma
     Dosage: UNK, 1 DOSE
     Route: 065

REACTIONS (4)
  - Cardiac failure [Unknown]
  - Condition aggravated [Unknown]
  - Pneumonia [Unknown]
  - Product use in unapproved indication [Unknown]
